FAERS Safety Report 16129984 (Version 1)
Quarter: 2019Q1

REPORT INFORMATION
  Report Type: Spontaneous
  Country: IT (occurrence: GB)
  Receive Date: 20190328
  Receipt Date: 20190328
  Transmission Date: 20190418
  Serious: Yes (Other)
  Sender: FDA-Public Use
  Company Number: IT-IPSEN BIOPHARMACEUTICALS, INC.-2019-04837

PATIENT
  Age: 74 Year
  Sex: Male

DRUGS (1)
  1. BOTULINUM TOXIN TYPE A NOS [Suspect]
     Active Substance: BOTULINUM TOXIN TYPE A
     Indication: TORTICOLLIS
     Dosage: 900 UNITS (300U LEFT SEMISPINALIS CAPITIS (SC) AND 600U RIGHT SEMISPINALIS CAPITIS (SC)
     Route: 030

REACTIONS (1)
  - Radiculitis brachial [Recovered/Resolved]
